FAERS Safety Report 19813226 (Version 1)
Quarter: 2021Q3

REPORT INFORMATION
  Report Type: Report from Study
  Country: CO (occurrence: CO)
  Receive Date: 20210910
  Receipt Date: 20210910
  Transmission Date: 20211014
  Serious: Yes (Hospitalization, Other)
  Sender: FDA-Public Use
  Company Number: CO-ASTRAZENECA-2021A714910

PATIENT
  Age: 27264 Day
  Sex: Male
  Weight: 80 kg

DRUGS (1)
  1. BRILINTA [Suspect]
     Active Substance: TICAGRELOR
     Indication: ACUTE CORONARY SYNDROME
     Route: 048
     Dates: start: 20201218, end: 20210801

REACTIONS (6)
  - Abdominal pain upper [Recovered/Resolved]
  - Diabetes mellitus [Unknown]
  - Back pain [Recovered/Resolved]
  - Gastritis [Recovered/Resolved]
  - Discouragement [Recovered/Resolved]
  - Decreased appetite [Recovered/Resolved]

NARRATIVE: CASE EVENT DATE: 20210720
